FAERS Safety Report 5794803-9 (Version None)
Quarter: 2008Q2

REPORT INFORMATION
  Report Type: 
  Country: None (occurrence: None)
  Receive Date: 20080630
  Receipt Date: 20080623
  Transmission Date: 20081010
  Serious: Yes (Hospitalization)
  Sender: FDA-Public Use
  Company Number: A0732005A

PATIENT
  Age: 58 Year
  Sex: Female

DRUGS (2)
  1. LAPATINIB [Suspect]
     Dosage: 1250MG PER DAY
     Route: 048
     Dates: start: 20060823, end: 20070112
  2. CAPECITABINE [Suspect]
     Dosage: 1500MG CYCLIC
     Route: 048
     Dates: start: 20060823, end: 20070110

REACTIONS (1)
  - DYSPNOEA [None]
